FAERS Safety Report 5034233-0 (Version None)
Quarter: 2006Q2

REPORT INFORMATION
  Report Type: 
  Country: None (occurrence: None)
  Receive Date: 20060626
  Receipt Date: 20060530
  Transmission Date: 20061013
  Serious: Yes (Death, Hospitalization)
  Sender: FDA-Public Use
  Company Number: PHHO2006MY08895

PATIENT
  Age: 71 Year
  Sex: Male
  Weight: 40 kg

DRUGS (1)
  1. GLEEVEC [Suspect]
     Indication: GASTROINTESTINAL STROMAL TUMOUR
     Dosage: 200 MG, BID
     Route: 048
     Dates: start: 20060519, end: 20060522

REACTIONS (1)
  - GASTROINTESTINAL HAEMORRHAGE [None]
